FAERS Safety Report 10997979 (Version 1)
Quarter: 2015Q2

REPORT INFORMATION
  Report Type: Spontaneous
  Country: US (occurrence: US)
  Receive Date: 20150408
  Receipt Date: 20150408
  Transmission Date: 20150821
  Serious: No
  Sender: FDA-Public Use
  Company Number: US-BANPHARM-20153396

PATIENT
  Age: 83 Year
  Sex: Female
  Weight: 57.61 kg

DRUGS (8)
  1. VITAMIN C [Concomitant]
     Active Substance: ASCORBIC ACID
  2. HIGH CHOLESTEROL MEDICATION [Concomitant]
     Active Substance: UNSPECIFIED INGREDIENT
  3. BLOOD PRESSURE MEDICATION [Concomitant]
     Active Substance: UNSPECIFIED INGREDIENT
  4. VITAMIN D [Concomitant]
     Active Substance: CHOLECALCIFEROL
  5. STEROID EYE DROPS [Concomitant]
  6. DIABETIC MEDICATION [Concomitant]
     Active Substance: UNSPECIFIED INGREDIENT
  7. ALEVE [Suspect]
     Active Substance: NAPROXEN SODIUM
     Route: 048
     Dates: start: 2014
  8. LOVASTATIN. [Concomitant]
     Active Substance: LOVASTATIN

REACTIONS (5)
  - Oropharyngeal pain [Unknown]
  - Throat irritation [Unknown]
  - Lip blister [Recovered/Resolved]
  - Oral discomfort [Unknown]
  - Sensation of foreign body [Unknown]

NARRATIVE: CASE EVENT DATE: 20150127
